FAERS Safety Report 24937590 (Version 1)
Quarter: 2025Q1

REPORT INFORMATION
  Report Type: Other
  Country: US (occurrence: US)
  Receive Date: 20250206
  Receipt Date: 20250206
  Transmission Date: 20250408
  Serious: Yes (Life-Threatening)
  Sender: B BRAUN
  Company Number: US-B.Braun Medical Inc.-2170610

PATIENT
  Age: 43 Year
  Sex: Female

DRUGS (9)
  1. MEROPENEM [Suspect]
     Active Substance: MEROPENEM
     Indication: Septic shock
  2. MEROPENEM [Suspect]
     Active Substance: MEROPENEM
     Indication: Pneumonia
  3. VANCOMYCIN [Suspect]
     Active Substance: VANCOMYCIN
  4. PROTONIX [Concomitant]
     Active Substance: PANTOPRAZOLE SODIUM
  5. OCTREOTIDE [Concomitant]
     Active Substance: OCTREOTIDE
  6. VASOPRESSIN [Concomitant]
     Active Substance: VASOPRESSIN
  7. PHENYLEPHRINE [Concomitant]
     Active Substance: PHENYLEPHRINE
  8. NOREPINEPHRINE [Concomitant]
     Active Substance: NOREPINEPHRINE
  9. MICAFUNGIN [Suspect]
     Active Substance: MICAFUNGIN SODIUM

REACTIONS (1)
  - Drug ineffective [Unknown]
